FAERS Safety Report 13385259 (Version 2)
Quarter: 2017Q2

REPORT INFORMATION
  Report Type: Spontaneous
  Country: DE (occurrence: DE)
  Receive Date: 20170330
  Receipt Date: 20170514
  Transmission Date: 20170830
  Serious: Yes (Other)
  Sender: FDA-Public Use
  Company Number: PHHY2017DE044427

PATIENT
  Sex: Male

DRUGS (1)
  1. RITALIN [Suspect]
     Active Substance: METHYLPHENIDATE HYDROCHLORIDE
     Indication: ATTENTION DEFICIT/HYPERACTIVITY DISORDER
     Dosage: 40 MG/ 20 MG
     Route: 065

REACTIONS (5)
  - Borrelia infection [Unknown]
  - Hypothyroidism [Unknown]
  - Vitamin B complex deficiency [Unknown]
  - Derealisation [Unknown]
  - Iron deficiency [Unknown]
